FAERS Safety Report 25920488 (Version 1)
Quarter: 2025Q4

REPORT INFORMATION
  Report Type: Spontaneous
  Country: US (occurrence: US)
  Receive Date: 20251014
  Receipt Date: 20251014
  Transmission Date: 20260118
  Serious: No
  Sender: DR REDDYS
  Company Number: US-DRL-USA-USA/2025/09/013968

PATIENT
  Age: 70 Year
  Sex: Female

DRUGS (5)
  1. LIOTHYRONINE SODIUM [Suspect]
     Active Substance: LIOTHYRONINE SODIUM
     Indication: Thyroid disorder
     Route: 065
  2. LEVOTHYROXINE [Suspect]
     Active Substance: LEVOTHYROXINE
     Indication: Thyroid disorder
  3. BENICAR [Concomitant]
     Active Substance: OLMESARTAN MEDOXOMIL
     Indication: Blood pressure measurement
  4. OMEPRAZOLE [Concomitant]
     Active Substance: OMEPRAZOLE
     Indication: Hip arthroplasty
     Dosage: TAKEN AT NIGHT
  5. GABAPENTIN [Concomitant]
     Active Substance: GABAPENTIN
     Indication: Hip arthroplasty
     Dosage: TAKEN AT NIGHT

REACTIONS (3)
  - Psychomotor hyperactivity [Unknown]
  - Insomnia [Unknown]
  - Wrong technique in product usage process [Unknown]
